FAERS Safety Report 7208743-1 (Version None)
Quarter: 2011Q1

REPORT INFORMATION
  Report Type: 
  Country: None (occurrence: None)
  Receive Date: 20110104
  Receipt Date: 20101231
  Transmission Date: 20110831
  Serious: Yes (Life-Threatening)
  Sender: FDA-Public Use
  Company Number: IT-PFIZER INC-2010171461

PATIENT
  Age: 64 Year
  Sex: Female

DRUGS (1)
  1. TAZOCIN [Suspect]
     Indication: PNEUMONIA PNEUMOCOCCAL
     Dosage: 4.5 G, 1X/DAY
     Dates: start: 20101118, end: 20101118

REACTIONS (7)
  - DYSPNOEA [None]
  - CYANOSIS [None]
  - HYPERHIDROSIS [None]
  - COUGH [None]
  - MALAISE [None]
  - PALLOR [None]
  - TACHYPNOEA [None]
